FAERS Safety Report 4803700-4 (Version None)
Quarter: 2005Q4

REPORT INFORMATION
  Report Type: 
  Country: None (occurrence: None)
  Receive Date: 20051014
  Receipt Date: 20051012
  Transmission Date: 20060501
  Serious: Yes (Hospitalization, Disabling)
  Sender: FDA-Public Use
  Company Number: USA-2005-0020907

PATIENT
  Age: 76 Year
  Sex: Female

DRUGS (3)
  1. CEFDITOREN PIVOXIL (SIMILAR TO NDA 21-222)(CEFDITOREN PIVOXIL) OTHER [Suspect]
     Indication: PYELONEPHRITIS
     Dosage: 200 MG, DAILY, ORAL
     Route: 048
     Dates: start: 20050625, end: 20050625
  2. ASPIRIN [Concomitant]
  3. NOZLEN (SODIUM GUALENATE) [Concomitant]

REACTIONS (5)
  - MOVEMENT DISORDER [None]
  - ORAL INTAKE REDUCED [None]
  - RENAL FAILURE ACUTE [None]
  - RENAL HYPERTROPHY [None]
  - RHABDOMYOLYSIS [None]
